FAERS Safety Report 5369988-9 (Version None)
Quarter: 2007Q2

REPORT INFORMATION
  Report Type: 
  Country: None (occurrence: None)
  Receive Date: 20070626
  Receipt Date: 20070619
  Transmission Date: 20071010
  Serious: Yes (Other)
  Sender: FDA-Public Use
  Company Number: PHEH2007US09050

PATIENT

DRUGS (1)
  1. PARLODEL [Suspect]

REACTIONS (2)
  - HEART VALVE INSUFFICIENCY [None]
  - SUDDEN ONSET OF SLEEP [None]
